FAERS Safety Report 9640581 (Version 1)
Quarter: 2013Q4

REPORT INFORMATION
  Report Type: Spontaneous
  Country: US (occurrence: US)
  Receive Date: 20131023
  Receipt Date: 20131023
  Transmission Date: 20140711
  Serious: No
  Sender: FDA-Public Use
  Company Number: US-ABBVIE-13P-163-1098019-00

PATIENT
  Age: 30 Year
  Sex: Female
  Weight: 93.07 kg

DRUGS (3)
  1. LUPRON DEPOT [Suspect]
     Indication: ENDOMETRIOSIS
     Dates: start: 20130505, end: 20130505
  2. DILAUDID [Concomitant]
     Indication: ABDOMINAL PAIN
     Dosage: ALTERNATING WITH HYDROCODONE
  3. HYDROCODONE [Concomitant]
     Indication: ABDOMINAL PAIN
     Dosage: ALTERNATING WITH DILAUDID

REACTIONS (1)
  - Bone pain [Not Recovered/Not Resolved]
